FAERS Safety Report 9820540 (Version 2)
Quarter: 2014Q3

REPORT INFORMATION
  Report Type: Spontaneous
  Country: US (occurrence: US)
  Receive Date: 20140116
  Receipt Date: 20140815
  Transmission Date: 20150326
  Serious: Yes (Hospitalization, Other)
  Sender: FDA-Public Use
  Company Number: US-009507513-1401USA004963

PATIENT
  Sex: Female

DRUGS (1)
  1. NUVARING [Suspect]
     Active Substance: ETHINYL ESTRADIOL\ETONOGESTREL
     Indication: CONTRACEPTION
     Route: 067

REACTIONS (9)
  - Joint dislocation [Unknown]
  - Gastrooesophageal reflux disease [Unknown]
  - Transverse sinus thrombosis [Unknown]
  - Asthma [Unknown]
  - Hypokalaemia [Unknown]
  - Thrombectomy [Unknown]
  - Wisdom teeth removal [Unknown]
  - Depression [Unknown]
  - Constipation [Not Recovered/Not Resolved]

NARRATIVE: CASE EVENT DATE: 201206
